FAERS Safety Report 4576487-0 (Version None)
Quarter: 2005Q1

REPORT INFORMATION
  Report Type: 
  Country: None (occurrence: None)
  Receive Date: 20050209
  Receipt Date: 20050204
  Transmission Date: 20050727
  Serious: Yes (Hospitalization)
  Sender: FDA-Public Use
  Company Number: DE-MERCK-0502DEU00047

PATIENT
  Sex: Female

DRUGS (2)
  1. VIOXX [Suspect]
     Route: 048
     Dates: start: 19991201, end: 20011201
  2. VIOXX [Suspect]
     Route: 048
     Dates: start: 20030121, end: 20040916

REACTIONS (1)
  - ACUTE CORONARY SYNDROME [None]
